FAERS Safety Report 13596722 (Version 3)
Quarter: 2017Q4

REPORT INFORMATION
  Report Type: Spontaneous
  Country: US (occurrence: US)
  Receive Date: 20170531
  Receipt Date: 20171004
  Transmission Date: 20180320
  Serious: No
  Sender: FDA-Public Use
  Company Number: US-PFIZER INC-2017236743

PATIENT
  Age: 91 Year
  Sex: Female

DRUGS (2)
  1. TRACLEER [Concomitant]
     Active Substance: BOSENTAN
     Dosage: UNK
     Dates: start: 2007, end: 20170630
  2. REVATIO [Suspect]
     Active Substance: SILDENAFIL CITRATE
     Indication: DYSPNOEA
     Dosage: 20 MG, UNK (20 MG ONCE A DAY; 3)
     Dates: start: 2007

REACTIONS (2)
  - Hypoacusis [Recovered/Resolved]
  - Product use in unapproved indication [Unknown]
